APPROVED DRUG PRODUCT: CLOTRIMAZOLE
Active Ingredient: CLOTRIMAZOLE
Strength: 1%
Dosage Form/Route: SOLUTION;TOPICAL
Application: A216569 | Product #001 | TE Code: AT
Applicant: SCIEGEN PHARMACEUTICALS INC
Approved: Oct 16, 2023 | RLD: No | RS: No | Type: RX